FAERS Safety Report 7249320-6 (Version None)
Quarter: 2011Q1

REPORT INFORMATION
  Report Type: 
  Country: None (occurrence: None)
  Receive Date: 20110128
  Receipt Date: 20101214
  Transmission Date: 20110831
  Serious: Yes (Hospitalization, Other)
  Sender: FDA-Public Use
  Company Number: US-BAYER-2010-006628

PATIENT
  Sex: Female

DRUGS (10)
  1. LISINOPRIL [Concomitant]
     Indication: HYPERTENSION
     Dosage: 20 MG, QD
  2. PLAVIX [Concomitant]
     Dosage: 75 MG, QD
  3. BETASERON [Suspect]
     Dosage: 8 MIU, QOD
     Route: 058
     Dates: start: 20100917
  4. NORVASC [Concomitant]
     Dosage: 5 MG, QD
  5. CLONIDINE [Concomitant]
     Dosage: 1 MG, TID
  6. GABAPENTIN [Concomitant]
     Dosage: 300 MG, TID
  7. BETASERON [Suspect]
     Indication: RELAPSING-REMITTING MULTIPLE SCLEROSIS
     Dosage: 8 MIU, QOD
     Route: 058
     Dates: start: 20100506, end: 20100830
  8. MINITRAN [Concomitant]
     Indication: BLOOD PRESSURE INCREASED
     Dosage: .04 MG, PRN
     Route: 061
  9. ASPIRIN [Concomitant]
     Dosage: 1 DF, QD
  10. SIMVASTATIN [Concomitant]
     Dosage: 20 MG, QD

REACTIONS (7)
  - CONFUSIONAL STATE [None]
  - TRANSIENT ISCHAEMIC ATTACK [None]
  - BLOOD PRESSURE INCREASED [None]
  - ATRIOVENTRICULAR BLOCK [None]
  - PAIN IN EXTREMITY [None]
  - APHASIA [None]
  - FEAR [None]
